FAERS Safety Report 4771138-4 (Version None)
Quarter: 2005Q3

REPORT INFORMATION
  Report Type: 
  Country: None (occurrence: None)
  Receive Date: 20050914
  Receipt Date: 20050902
  Transmission Date: 20060218
  Serious: No
  Sender: FDA-Public Use
  Company Number: 2005116774

PATIENT
  Sex: Female

DRUGS (4)
  1. LIPITOR [Suspect]
     Indication: ILL-DEFINED DISORDER
     Dates: start: 19900101
  2. ACCURETIC [Concomitant]
  3. EFFEXOR [Concomitant]
  4. ADVAIR DISKUS 100/50 [Concomitant]

REACTIONS (2)
  - ASTHMA [None]
  - CONDITION AGGRAVATED [None]
